FAERS Safety Report 20051032 (Version 4)
Quarter: 2022Q2

REPORT INFORMATION
  Report Type: Report from Study
  Country: CA (occurrence: CA)
  Receive Date: 20211110
  Receipt Date: 20220406
  Transmission Date: 20220721
  Serious: Yes (Hospitalization)
  Sender: FDA-Public Use
  Company Number: CA-JNJFOC-20181236999

PATIENT
  Age: 59 Year
  Sex: Female
  Weight: 65 kg

DRUGS (2)
  1. REMICADE [Suspect]
     Active Substance: INFLIXIMAB
     Indication: Crohn^s disease
     Dosage: EXPIRY DATES: 30-MAR-2021, 30-JUL-2024. THE PATIENT ALSO RECEIVED INFUSION ON 02-OCT-2011
     Route: 042
     Dates: start: 20100304
  2. CIPRO [Concomitant]
     Active Substance: CIPROFLOXACIN HYDROCHLORIDE
     Indication: Prophylaxis
     Dosage: ON MONDAY, WEDNESDAY AND FRIDAY
     Route: 065
     Dates: start: 202202

REACTIONS (7)
  - Influenza [Recovered/Resolved]
  - Renal impairment [Unknown]
  - Renal transplant [Unknown]
  - Proctalgia [Unknown]
  - Anorectal disorder [Unknown]
  - Diarrhoea [Not Recovered/Not Resolved]
  - Abdominal pain [Unknown]

NARRATIVE: CASE EVENT DATE: 20181201
